FAERS Safety Report 7769795-3 (Version None)
Quarter: 2011Q3

REPORT INFORMATION
  Report Type: 
  Country: None (occurrence: None)
  Receive Date: 20110922
  Receipt Date: 20110516
  Transmission Date: 20111222
  Serious: Yes (Hospitalization)
  Sender: FDA-Public Use
  Company Number: US-ASTRAZENECA-2009UW03127

PATIENT
  Age: 42 Year
  Sex: Male
  Weight: 70.8 kg

DRUGS (25)
  1. ABILIFY [Concomitant]
     Dates: start: 20081201, end: 20090301
  2. SEROQUEL [Suspect]
     Route: 048
     Dates: start: 20020221
  3. RISPERDAL [Concomitant]
     Dates: start: 20051215
  4. TRAZODONE HYDROCHLORIDE [Concomitant]
     Dates: start: 20051215
  5. HYDROCODONE BITARTRATE AND ACETAMINOPHEN [Concomitant]
     Dosage: 5/500
     Dates: start: 20020814
  6. ABILIFY [Concomitant]
     Dates: start: 20070901, end: 20071101
  7. ZYPREXA [Concomitant]
     Dates: start: 20081201, end: 20090301
  8. ZOLOFT [Concomitant]
     Dates: start: 20020221
  9. PROTONIX [Concomitant]
     Dates: start: 20051215
  10. HEMORRHOIDAL HC [Concomitant]
     Dates: start: 20051215
  11. CYCLOPHOSPHAMIDE [Concomitant]
     Dates: start: 20020216
  12. FENTANYL [Concomitant]
     Dates: start: 20061102
  13. IBUPROFEN [Concomitant]
     Dates: start: 20051113
  14. CELEBREX [Concomitant]
     Dates: start: 20020216
  15. SEROQUEL [Suspect]
     Indication: DEPRESSION
     Dosage: 100-900 MG
     Route: 048
     Dates: start: 20020213, end: 20070827
  16. RISPERDAL [Concomitant]
     Dates: start: 20081101
  17. SYMBYAX [Concomitant]
     Dates: start: 20081201, end: 20090301
  18. PROZAC [Concomitant]
  19. LITHIUM CARBONATE [Concomitant]
  20. CITALOPRAM HYDROBROMIDE [Concomitant]
     Dates: start: 20051113
  21. AMBIEN [Concomitant]
     Dates: start: 20020823
  22. SEROQUEL [Suspect]
     Indication: BIPOLAR DISORDER
     Dosage: 100-900 MG
     Route: 048
     Dates: start: 20020213, end: 20070827
  23. SEROQUEL [Suspect]
     Route: 048
     Dates: start: 20020221
  24. LEXAPRO [Concomitant]
     Route: 048
     Dates: start: 20050815
  25. OXYCONTIN [Concomitant]
     Dates: start: 20020723

REACTIONS (2)
  - PANCREATITIS ACUTE [None]
  - PANCREATITIS [None]
